FAERS Safety Report 23640047 (Version 8)
Quarter: 2025Q1

REPORT INFORMATION
  Report Type: Spontaneous
  Country: US (occurrence: US)
  Receive Date: 20240317
  Receipt Date: 20250325
  Transmission Date: 20250409
  Serious: Yes (Hospitalization, Other)
  Sender: NOVARTIS
  Company Number: US-002147023-NVSC2024US053535

PATIENT
  Age: 61 Year
  Sex: Female

DRUGS (6)
  1. PROMACTA [Suspect]
     Active Substance: ELTROMBOPAG OLAMINE
     Indication: Immune thrombocytopenia
     Dosage: 75 MG, QD
     Route: 048
     Dates: start: 202009
  2. PROMACTA [Suspect]
     Active Substance: ELTROMBOPAG OLAMINE
     Indication: Thrombocytopenia
     Dosage: 50 MG, QD
     Route: 048
     Dates: start: 20220407
  3. PROMACTA [Suspect]
     Active Substance: ELTROMBOPAG OLAMINE
     Dosage: 50 MG, QD
     Route: 048
     Dates: start: 20230608
  4. UNSPECIFIED INGREDIENT [Concomitant]
     Active Substance: UNSPECIFIED INGREDIENT
     Indication: Product used for unknown indication
     Route: 065
  5. TYLENOL [Concomitant]
     Active Substance: ACETAMINOPHEN
     Indication: Product used for unknown indication
     Route: 065
  6. HYDROCHLOROTHIAZIDE [Concomitant]
     Active Substance: HYDROCHLOROTHIAZIDE
     Indication: Hypertension
     Route: 065

REACTIONS (11)
  - Dehydration [Recovering/Resolving]
  - Hepatic enzyme increased [Recovering/Resolving]
  - Nausea [Recovering/Resolving]
  - Vomiting [Recovering/Resolving]
  - Myocardial infarction [Unknown]
  - Liver injury [Recovering/Resolving]
  - Skin disorder [Unknown]
  - Fatigue [Unknown]
  - Chest pain [Unknown]
  - Platelet count abnormal [Unknown]
  - Neurodermatitis [Unknown]

NARRATIVE: CASE EVENT DATE: 20240101
